FAERS Safety Report 8204185-0 (Version None)
Quarter: 2012Q1

REPORT INFORMATION
  Report Type: 
  Country: None (occurrence: None)
  Receive Date: 20120313
  Receipt Date: 20120307
  Transmission Date: 20120608
  Serious: Yes (Death, Other)
  Sender: FDA-Public Use
  Company Number: JP-ASTELLAS-2012JP002021

PATIENT
  Age: 18 Year
  Sex: Male

DRUGS (8)
  1. PROGRAF [Suspect]
     Indication: PROPHYLAXIS AGAINST GRAFT VERSUS HOST DISEASE
     Route: 065
  2. ETOPOSIDE [Concomitant]
     Route: 065
  3. FLUDARABINE PHOSPHATE [Concomitant]
     Indication: BONE MARROW CONDITIONING REGIMEN
     Route: 065
  4. MELPHALAN HYDROCHLORIDE [Concomitant]
     Indication: BONE MARROW CONDITIONING REGIMEN
     Route: 065
  5. RITUXIMAB [Concomitant]
     Route: 065
  6. METHOTREXATE [Concomitant]
     Indication: PROPHYLAXIS AGAINST GRAFT VERSUS HOST DISEASE
     Route: 065
  7. ANTI-THYMOCYTE GLOBULIN NOS [Concomitant]
     Indication: BONE MARROW CONDITIONING REGIMEN
     Route: 065
  8. PREDNISOLONE [Concomitant]
     Indication: ACUTE GRAFT VERSUS HOST DISEASE
     Route: 065

REACTIONS (5)
  - ILEUS [None]
  - DRUG INEFFECTIVE [None]
  - POST TRANSPLANT LYMPHOPROLIFERATIVE DISORDER [None]
  - ACUTE GRAFT VERSUS HOST DISEASE [None]
  - SEPSIS [None]
